FAERS Safety Report 7081254-2 (Version None)
Quarter: 2010Q4

REPORT INFORMATION
  Report Type: 
  Country: None (occurrence: None)
  Receive Date: 20101025
  Receipt Date: 20101019
  Transmission Date: 20110411
  Serious: Yes (Other)
  Sender: FDA-Public Use
  Company Number: 2008AL001746

PATIENT
  Age: 21 Year
  Sex: Male

DRUGS (5)
  1. IBUPROFEN [Suspect]
     Indication: PRODUCT USED FOR UNKNOWN INDICATION
     Dosage: 800 MG;X1;PO
     Route: 048
     Dates: start: 20080128, end: 20080128
  2. SUDAFED 12 HOUR [Suspect]
     Indication: PRODUCT USED FOR UNKNOWN INDICATION
     Dosage: 720 MG;PO
     Route: 048
     Dates: start: 20080128, end: 20080128
  3. ANTIHISTAMINES [Concomitant]
  4. ALCOHOL [Concomitant]
  5. PREV MEDS [Concomitant]

REACTIONS (5)
  - ALCOHOL ABUSE [None]
  - DEHYDRATION [None]
  - DEPRESSION [None]
  - OVERDOSE [None]
  - TACHYCARDIA [None]
